FAERS Safety Report 9325405 (Version 1)
Quarter: 2013Q2

REPORT INFORMATION
  Report Type: Spontaneous
  Country: BR (occurrence: BR)
  Receive Date: 20130604
  Receipt Date: 20130604
  Transmission Date: 20140414
  Serious: Yes (Hospitalization)
  Sender: FDA-Public Use
  Company Number: BR-PFIZER INC-2013164547

PATIENT
  Sex: Male

DRUGS (1)
  1. TYGACIL [Suspect]

REACTIONS (2)
  - Cholecystitis [Recovered/Resolved]
  - Vomiting [Recovered/Resolved]
